FAERS Safety Report 18060850 (Version 1)
Quarter: 2020Q3

REPORT INFORMATION
  Report Type: Spontaneous
  Country: US (occurrence: US)
  Receive Date: 20200723
  Receipt Date: 20200723
  Transmission Date: 20201103
  Serious: No
  Sender: FDA-Public Use
  Company Number: US-AJANTA PHARMA USA INC.-2087653

PATIENT
  Age: 63 Year
  Sex: Male
  Weight: 78.18 kg

DRUGS (4)
  1. TADALAFIL (ANDA 209654) [Suspect]
     Active Substance: TADALAFIL
     Indication: ERECTILE DYSFUNCTION
     Route: 048
     Dates: start: 20200610
  2. BACLOFEN. [Concomitant]
     Active Substance: BACLOFEN
  3. UNSPECIFIED VITAMINS [Concomitant]
     Active Substance: VITAMINS
  4. UNSPECIFIED SUPPLEMENTS [Concomitant]

REACTIONS (2)
  - Therapeutic product effect incomplete [Not Recovered/Not Resolved]
  - Product substitution issue [Not Recovered/Not Resolved]

NARRATIVE: CASE EVENT DATE: 20200610
